FAERS Safety Report 20790587 (Version 1)
Quarter: 2022Q2

REPORT INFORMATION
  Report Type: Spontaneous
  Country: US (occurrence: None)
  Receive Date: 20220505
  Receipt Date: 20220505
  Transmission Date: 20220721
  Serious: No
  Sender: FDA-Public Use
  Company Number: None

PATIENT

DRUGS (2)
  1. TENECTEPLASE [Suspect]
     Active Substance: TENECTEPLASE
  2. ALTEPLASE [Suspect]
     Active Substance: ALTEPLASE

REACTIONS (4)
  - Product selection error [None]
  - Wrong product administered [None]
  - Transcription medication error [None]
  - Product name confusion [None]
